FAERS Safety Report 4378143-0 (Version None)
Quarter: 2004Q2

REPORT INFORMATION
  Report Type: 
  Country: None (occurrence: None)
  Receive Date: 20040616
  Receipt Date: 20040609
  Transmission Date: 20050107
  Serious: Yes (Hospitalization, Other)
  Sender: FDA-Public Use
  Company Number: US-BRISTOL-MYERS SQUIBB COMPANY-12609004

PATIENT
  Age: 43 Year
  Sex: Male

DRUGS (7)
  1. SUSTIVA [Suspect]
     Indication: HIV INFECTION
     Dosage: TEMPORARILY WITH-HELD AT HOSPITALIZATION
     Dates: start: 20040202
  2. TENOFOVIR [Suspect]
     Indication: HIV INFECTION
     Dosage: TEMPORARILY WITH-HELD AT HOSPITALIZATION
     Dates: start: 20040202
  3. EPIVIR [Suspect]
     Indication: HIV INFECTION
     Dosage: TEMPORARILY WITH-HELD AT HOSPITALIZATION
     Dates: start: 20040202
  4. AZITHROMYCIN [Concomitant]
  5. ETHAMBUTOL HCL [Concomitant]
  6. RIFABUTIN [Concomitant]
  7. BUPROPION HCL [Concomitant]

REACTIONS (2)
  - HYPERCALCAEMIA [None]
  - RENAL FAILURE ACUTE [None]
